FAERS Safety Report 9948654 (Version 1)
Quarter: 2014Q1

REPORT INFORMATION
  Report Type: Report from Study
  Country: US (occurrence: US)
  Receive Date: 20140304
  Receipt Date: 20140304
  Transmission Date: 20141002
  Serious: Yes (Other)
  Sender: FDA-Public Use
  Company Number: US-ROCHE-1336300

PATIENT
  Sex: Male

DRUGS (20)
  1. LUCENTIS [Suspect]
     Indication: RETINAL OEDEMA
     Dosage: OU
     Route: 050
     Dates: start: 20110207
  2. LUCENTIS [Suspect]
     Indication: DIABETIC RETINOPATHY
  3. LUCENTIS [Suspect]
     Indication: DIABETIC RETINAL OEDEMA
  4. LUCENTIS [Suspect]
     Indication: MACULAR OEDEMA
  5. LUCENTIS [Suspect]
     Indication: TYPE 1 DIABETES MELLITUS
  6. LUCENTIS [Suspect]
     Indication: CATARACT
  7. AVASTIN [Suspect]
     Indication: RETINAL OEDEMA
     Dosage: OS
     Route: 050
  8. AVASTIN [Suspect]
     Indication: DIABETIC RETINOPATHY
  9. AVASTIN [Suspect]
     Indication: DIABETIC RETINAL OEDEMA
  10. AVASTIN [Suspect]
     Indication: MACULAR OEDEMA
  11. AVASTIN [Suspect]
     Indication: TYPE 1 DIABETES MELLITUS
  12. AVASTIN [Suspect]
     Indication: CATARACT
  13. CARVEDILOL [Concomitant]
     Dosage: 3.125 MG TABS
     Route: 048
  14. METFORMIN HYDROCHLORIDE [Concomitant]
     Dosage: 500 MG TABS
     Route: 048
  15. OCUFEN [Concomitant]
     Dosage: 1 GTT QID IN THE OPERATIVE EYE PRN DISCOMFORT
     Route: 047
  16. ACUVAIL [Concomitant]
  17. BROMDAY [Concomitant]
     Dosage: 0.09% SOLN ONCE DAILY PRN FOR PAIN
     Route: 047
  18. BETADINE [Concomitant]
     Route: 065
  19. PROPARACAINE [Concomitant]
  20. HUMAN INSULIN [Concomitant]

REACTIONS (8)
  - Blindness [Unknown]
  - Basal cell carcinoma [Unknown]
  - Cataract [Unknown]
  - Pupil fixed [Unknown]
  - Eye movement disorder [Unknown]
  - Vitreous haemorrhage [Recovered/Resolved]
  - Impaired healing [Unknown]
  - Eye oedema [Recovering/Resolving]
